FAERS Safety Report 4867738-3 (Version None)
Quarter: 2005Q4

REPORT INFORMATION
  Report Type: 
  Country: None (occurrence: None)
  Receive Date: 20051223
  Receipt Date: 20051223
  Transmission Date: 20060501
  Serious: No
  Sender: FDA-Public Use
  Company Number: None

PATIENT
  Age: 58 Year
  Sex: Female

DRUGS (2)
  1. ENALAPRIL 20 MG IVAX [Suspect]
     Indication: HYPERTENSION
     Dosage: ONE HALF TABLET DAILY
     Dates: start: 20050301
  2. PRAVACHOL [Concomitant]

REACTIONS (3)
  - BLOOD PRESSURE INCREASED [None]
  - DRUG EFFECT DECREASED [None]
  - MALAISE [None]
